FAERS Safety Report 5779042-X (Version None)
Quarter: 2008Q2

REPORT INFORMATION
  Report Type: 
  Country: None (occurrence: None)
  Receive Date: 20080617
  Receipt Date: 20070525
  Transmission Date: 20081010
  Serious: Yes (Hospitalization)
  Sender: FDA-Public Use
  Company Number: 07US000889

PATIENT
  Age: 14 Year
  Sex: Female
  Weight: 57.1 kg

DRUGS (3)
  1. LITHOBID [Suspect]
     Indication: BIPOLAR DISORDER
     Dosage: 300 MG, SEE TEXT, ORAL
     Route: 048
     Dates: start: 20060301
  2. GEODON (ZIPRASIDONE HYDROCHLORIDE) [Concomitant]
  3. CONCERTA [Concomitant]

REACTIONS (2)
  - DRUG INEFFECTIVE [None]
  - HYPOTHYROIDISM [None]
